FAERS Safety Report 5798166-4 (Version None)
Quarter: 2008Q3

REPORT INFORMATION
  Report Type: 
  Country: None (occurrence: None)
  Receive Date: 20080702
  Receipt Date: 20080620
  Transmission Date: 20090109
  Serious: Yes (Death)
  Sender: FDA-Public Use
  Company Number: A0726160A

PATIENT
  Age: 44 Year
  Sex: Female

DRUGS (16)
  1. ZOFRAN [Suspect]
     Indication: NAUSEA
     Dosage: 8MG AS REQUIRED
     Dates: start: 20070201
  2. PROMETHAZINE [Suspect]
     Indication: NAUSEA
     Dosage: 25MG AS REQUIRED
     Dates: start: 20060101
  3. MIRTAZAPINE [Suspect]
     Indication: DEPRESSION
     Dosage: 30MG TWICE PER DAY
     Dates: start: 20000101
  4. ZOLPIDEM [Suspect]
     Indication: INSOMNIA
     Dosage: 10MG AT NIGHT
  5. TEMAZEPAM [Suspect]
     Indication: INSOMNIA
     Dosage: 15MG AT NIGHT
     Route: 048
  6. HYDROCODONE BITARTRATE AND ACETAMINOPHEN [Suspect]
     Indication: PAIN
     Route: 048
     Dates: start: 19880101
  7. CHANTIX [Suspect]
     Dosage: .5MG PER DAY
     Route: 048
     Dates: start: 20070802
  8. PREVACID [Suspect]
     Indication: NAUSEA
     Dosage: 30MG IN THE MORNING
     Route: 048
     Dates: start: 20060101
  9. TRAZODONE HCL [Concomitant]
     Indication: DEPRESSION
     Dosage: 150MG AT NIGHT
     Route: 048
  10. GABAPENTIN [Concomitant]
     Dosage: 600MG AT NIGHT
     Route: 048
  11. PROVIGIL [Concomitant]
     Indication: SUPPLEMENTATION THERAPY
     Dosage: 200MG TWICE PER DAY
     Route: 048
     Dates: start: 20030101
  12. CLONAZEPAM [Concomitant]
     Indication: TACHYCARDIA
     Dosage: 2MG AS REQUIRED
     Route: 048
  13. RISPERDAL [Concomitant]
     Indication: DEPRESSION
     Dosage: 6MG AT NIGHT
     Route: 048
     Dates: start: 20030101
  14. ASTELIN [Concomitant]
     Indication: SEASONAL ALLERGY
     Dosage: 1SPR AS REQUIRED
     Route: 045
  15. LITHIUM CARBONATE [Concomitant]
     Indication: MOOD SWINGS
     Dosage: 450MG AT NIGHT
     Route: 048
  16. METHOCARBAMOL [Concomitant]
     Dosage: 500MG AS REQUIRED
     Route: 048

REACTIONS (4)
  - DRUG INTERACTION [None]
  - DRUG TOXICITY [None]
  - EPISTAXIS [None]
  - PULMONARY EMBOLISM [None]
